FAERS Safety Report 5541863-6 (Version None)
Quarter: 2007Q4

REPORT INFORMATION
  Report Type: 
  Country: None (occurrence: None)
  Receive Date: 20071210
  Receipt Date: 20071127
  Transmission Date: 20080405
  Serious: Yes (Other)
  Sender: FDA-Public Use
  Company Number: FR-ROCHE-512310

PATIENT
  Age: 21 Year
  Sex: Female
  Weight: 51 kg

DRUGS (2)
  1. ROACCUTANE [Suspect]
     Indication: DRUG USE FOR UNKNOWN INDICATION
     Route: 048
     Dates: start: 20061026, end: 20070515
  2. TRINORDIOL [Concomitant]
     Indication: CONTRACEPTION
     Route: 048
     Dates: end: 20070702

REACTIONS (2)
  - ABORTION SPONTANEOUS [None]
  - NO ADVERSE REACTION [None]
